FAERS Safety Report 10174817 (Version 1)
Quarter: 2014Q2

REPORT INFORMATION
  Report Type: Report from Study
  Country: US (occurrence: US)
  Receive Date: 20140515
  Receipt Date: 20140515
  Transmission Date: 20141212
  Serious: Yes (Hospitalization, Other)
  Sender: FDA-Public Use
  Company Number: US-BAYER-2014-067519

PATIENT
  Age: 47 Year
  Sex: Male

DRUGS (1)
  1. BETASERON [Suspect]
     Indication: MULTIPLE SCLEROSIS
     Dosage: 8 MIU, QOD, AT LAST DOSE
     Route: 058
     Dates: start: 19981210, end: 20140505

REACTIONS (4)
  - Epilepsy [Recovered/Resolved]
  - Abasia [Recovered/Resolved]
  - Faecal incontinence [Recovered/Resolved]
  - Urinary incontinence [Recovered/Resolved]
